FAERS Safety Report 8085930-4 (Version None)
Quarter: 2012Q1

REPORT INFORMATION
  Report Type: 
  Country: None (occurrence: None)
  Receive Date: 20120128
  Receipt Date: 20110505
  Transmission Date: 20120608
  Serious: No
  Sender: FDA-Public Use
  Company Number: US-ABBOTT-11P-163-0723647-00

PATIENT
  Sex: Male
  Weight: 54.48 kg

DRUGS (3)
  1. HUMIRA [Suspect]
     Indication: CROHN'S DISEASE
     Dates: start: 20110401, end: 20110401
  2. GENOTROPIN [Concomitant]
     Indication: BLOOD GROWTH HORMONE
  3. HUMIRA [Suspect]
     Dates: start: 20110401, end: 20110401

REACTIONS (3)
  - EPISTAXIS [None]
  - RHINORRHOEA [None]
  - INJECTION SITE EROSION [None]
